FAERS Safety Report 16749166 (Version 1)
Quarter: 2019Q3

REPORT INFORMATION
  Report Type: Spontaneous
  Country: US (occurrence: US)
  Receive Date: 20190710
  Receipt Date: 20190710
  Transmission Date: 20191005
  Serious: Yes (Life-Threatening, Other)
  Sender: FDA-Public Use
  Company Number: None

PATIENT
  Age: 65 Year
  Sex: Female
  Weight: 57.15 kg

DRUGS (1)
  1. NEOMYCIN POLYMYXIN B SULFATES AND DEXAMETHASONE [Suspect]
     Active Substance: DEXAMETHASONE\NEOMYCIN SULFATE\POLYMYXIN B SULFATE
     Indication: HORDEOLUM
     Dosage: ?          OTHER ROUTE:EYELID?
     Dates: start: 20180201, end: 20180321

REACTIONS (4)
  - Sinus disorder [None]
  - Tooth extraction [None]
  - Infection [None]
  - Abscess [None]

NARRATIVE: CASE EVENT DATE: 20190609
